FAERS Safety Report 22168342 (Version 2)
Quarter: 2023Q2

REPORT INFORMATION
  Report Type: Spontaneous
  Country: IT (occurrence: IT)
  Receive Date: 20230403
  Receipt Date: 20230424
  Transmission Date: 20230722
  Serious: Yes (Hospitalization, Other)
  Sender: FDA-Public Use
  Company Number: IT-DOCGEN-2302023

PATIENT
  Age: 44 Year
  Sex: Male

DRUGS (9)
  1. LANTHANUM CARBONATE [Suspect]
     Active Substance: LANTHANUM CARBONATE
     Indication: Blood phosphorus abnormal
     Dosage: 1000 MILLIGRAM
     Route: 065
     Dates: start: 20170926, end: 2018
  2. LANTHANUM CARBONATE [Suspect]
     Active Substance: LANTHANUM CARBONATE
     Indication: Hyperphosphataemia
  3. SEVELAMER [Suspect]
     Active Substance: SEVELAMER
     Indication: Blood phosphorus abnormal
     Dosage: 2 DOSAGE FORM
     Route: 065
     Dates: end: 2017
  4. SEVELAMER [Suspect]
     Active Substance: SEVELAMER
     Dosage: 800 MILLIGRAM, QOD
     Route: 065
     Dates: start: 2015
  5. SEVELAMER [Suspect]
     Active Substance: SEVELAMER
     Dosage: 1600 MILLIGRAM, QD
     Route: 065
     Dates: start: 20151209, end: 2017
  6. FERINJECT [Concomitant]
     Active Substance: FERRIC CARBOXYMALTOSE
     Dosage: UNK
     Route: 065
  7. EPOETIN ZETA [Concomitant]
     Active Substance: ERYTHROPOIETIN
     Dosage: UNK
     Route: 065
  8. CALCITRIOL [Concomitant]
     Active Substance: CALCITRIOL
     Dosage: 0.25 MICROGRAM
     Route: 065
  9. RAMIPRIL [Concomitant]
     Active Substance: RAMIPRIL
     Indication: Hypertension
     Dosage: 10 MILLIGRAM
     Route: 065

REACTIONS (3)
  - Diverticulitis [Recovered/Resolved]
  - Abdominal pain [Unknown]
  - Diverticulum intestinal [Recovering/Resolving]
